FAERS Safety Report 17609454 (Version 2)
Quarter: 2020Q2

REPORT INFORMATION
  Report Type: Spontaneous
  Country: JP (occurrence: JP)
  Receive Date: 20200401
  Receipt Date: 20200421
  Transmission Date: 20200713
  Serious: Yes (Other)
  Sender: FDA-Public Use
  Company Number: JP-ELI_LILLY_AND_COMPANY-JP202003012497

PATIENT
  Age: 66 Year
  Sex: Male
  Weight: 58 kg

DRUGS (11)
  1. DULOXETINE HYDROCHLORIDE. [Suspect]
     Active Substance: DULOXETINE HYDROCHLORIDE
     Indication: BACK PAIN
     Dosage: 20 MG, EACH MORNING
     Route: 048
     Dates: start: 20200125, end: 20200129
  2. MIROGABALIN BESILATE [Concomitant]
     Indication: BACK PAIN
     Dosage: UNK UNK, DAILY
     Route: 048
     Dates: start: 20200121, end: 20200123
  3. BELSOMRA [Concomitant]
     Active Substance: SUVOREXANT
     Dosage: UNK
     Route: 048
     Dates: start: 20200121
  4. VITAMEDIN [BENFOTIAMINE;CYANOCOBALAMIN;PYRIDO [Concomitant]
     Route: 048
  5. DULOXETINE HYDROCHLORIDE. [Suspect]
     Active Substance: DULOXETINE HYDROCHLORIDE
     Dosage: 60 MG, DAILY
     Route: 048
     Dates: start: 20200205, end: 20200303
  6. LYRICA [Concomitant]
     Active Substance: PREGABALIN
     Indication: BACK PAIN
     Dosage: 150 MG, DAILY
     Route: 048
  7. DULOXETINE HYDROCHLORIDE. [Suspect]
     Active Substance: DULOXETINE HYDROCHLORIDE
     Dosage: 20 MG, BID
     Route: 048
     Dates: start: 20200130, end: 20200204
  8. ROZEREM [Concomitant]
     Active Substance: RAMELTEON
     Route: 048
  9. CILOSTAZOL. [Concomitant]
     Active Substance: CILOSTAZOL
     Route: 048
  10. MIROGABALIN BESILATE [Concomitant]
     Dosage: 10 MG, DAILY
     Route: 048
     Dates: start: 20200124
  11. LUNESTA [Concomitant]
     Active Substance: ESZOPICLONE
     Route: 048

REACTIONS (2)
  - Inappropriate schedule of product administration [Recovered/Resolved]
  - Drug-induced liver injury [Recovering/Resolving]

NARRATIVE: CASE EVENT DATE: 20200125
